FAERS Safety Report 9986252 (Version 2)
Quarter: 2014Q1

REPORT INFORMATION
  Report Type: Report from Study
  Country: US (occurrence: US)
  Receive Date: 20140307
  Receipt Date: 20140307
  Transmission Date: 20141002
  Serious: No
  Sender: FDA-Public Use
  Company Number: US-ABBVIE-08P-163-0471076-00

PATIENT
  Age: 59 Year
  Sex: Female
  Weight: 99.88 kg

DRUGS (14)
  1. HUMIRA 40 MG/0.8 ML PEN [Suspect]
     Indication: RHEUMATOID ARTHRITIS
     Route: 050
     Dates: start: 200803
  2. HUMIRA 40 MG/0.8 ML PEN [Suspect]
     Dates: start: 200808
  3. METHOTREXATE [Suspect]
     Indication: RHEUMATOID ARTHRITIS
  4. CELEBREX [Suspect]
     Indication: RHEUMATOID ARTHRITIS
  5. NEXIUM [Concomitant]
     Indication: GASTROOESOPHAGEAL REFLUX DISEASE
     Dosage: AT BEDTIME
     Route: 048
  6. AMBIEN [Concomitant]
     Indication: INSOMNIA
     Dosage: AT BEDTIME
     Route: 048
     Dates: start: 200806
  7. ASPIRIN LOW [Concomitant]
     Indication: PROPHYLAXIS
  8. VITAMINS [Concomitant]
     Indication: VITAMIN SUPPLEMENTATION
  9. OMEPRAZOLE [Concomitant]
     Indication: GASTROOESOPHAGEAL REFLUX DISEASE
  10. ZOLPIDEM [Concomitant]
     Indication: SLEEP DISORDER THERAPY
  11. OMEGA RED KRILL OIL [Concomitant]
     Indication: SUPPLEMENTATION THERAPY
  12. XANAX [Concomitant]
     Indication: ANXIETY
  13. VITAMIN D3 [Concomitant]
     Indication: VITAMIN SUPPLEMENTATION
  14. GABAPENTIN [Concomitant]
     Indication: ARTHRITIS

REACTIONS (11)
  - Glycosylated haemoglobin increased [Unknown]
  - Upper respiratory tract infection [Recovered/Resolved]
  - Pneumonia [Unknown]
  - Liver function test abnormal [Recovered/Resolved]
  - Rheumatoid arthritis [Not Recovered/Not Resolved]
  - Pain [Unknown]
  - Erythema [Not Recovered/Not Resolved]
  - Umbilical haemorrhage [Recovered/Resolved]
  - Umbilical sepsis [Not Recovered/Not Resolved]
  - Bronchitis [Recovered/Resolved]
  - Rheumatoid arthritis [Recovered/Resolved]
